FAERS Safety Report 11228327 (Version 1)
Quarter: 2015Q2

REPORT INFORMATION
  Report Type: Spontaneous
  Country: US (occurrence: None)
  Receive Date: 20150629
  Receipt Date: 20150629
  Transmission Date: 20150821
  Serious: No
  Sender: FDA-Public Use
  Company Number: None

PATIENT
  Age: 62 Year
  Sex: Female

DRUGS (10)
  1. IMIPRAM HCL [Concomitant]
  2. HARVONI [Suspect]
     Active Substance: LEDIPASVIR\SOFOSBUVIR
     Indication: HEPATITIS C
     Route: 048
     Dates: start: 20150601
  3. NULYTELY [Concomitant]
     Active Substance: POLYETHYLENE GLYCOL 3350\POTASSIUM CHLORIDE\SODIUM BICARBONATE\SODIUM CHLORIDE
  4. BISACODYL. [Concomitant]
     Active Substance: BISACODYL
  5. PRISTIQ EXTENDED RELEASE [Concomitant]
     Active Substance: DESVENLAFAXINE SUCCINATE
  6. FLOUXETINE [Concomitant]
  7. OMPRAZOLE [Concomitant]
     Active Substance: OMEPRAZOLE
  8. PROPO-N/APA [Concomitant]
  9. OLUX-E [Concomitant]
     Active Substance: CLOBETASOL PROPIONATE
  10. NEUPOGENM MICHARDIS [Concomitant]

REACTIONS (2)
  - Fatigue [None]
  - Headache [None]

NARRATIVE: CASE EVENT DATE: 201506
